FAERS Safety Report 21135692 (Version 1)
Quarter: 2022Q3

REPORT INFORMATION
  Report Type: Spontaneous
  Country: ES (occurrence: ES)
  Receive Date: 20220727
  Receipt Date: 20220727
  Transmission Date: 20221026
  Serious: Yes (Death, Hospitalization, Other)
  Sender: FDA-Public Use
  Company Number: ES-CELLTRION INC.-2022ES011725

PATIENT

DRUGS (3)
  1. RITUXIMAB [Suspect]
     Active Substance: RITUXIMAB
     Indication: Myasthenia gravis
     Dosage: 375 MG/M2 WEEKLY FOR FOUR CONSECUTIVE WEEKS AND THEN MONTHLY FOR THE NEXT TWO MONTHS (NUMBER OF INFU
  2. RITUXIMAB [Suspect]
     Active Substance: RITUXIMAB
     Dosage: 375 MG/M2 WEEKLY FOR FOUR CONSECUTIVE WEEKS AND THEN MONTHLY FOR THE NEXT TWO MONTHS (NUMBER OF INFU
  3. PREDNISONE [Suspect]
     Active Substance: PREDNISONE
     Indication: Myasthenia gravis

REACTIONS (8)
  - Progressive multifocal leukoencephalopathy [Fatal]
  - Cytomegalovirus infection [Fatal]
  - Pneumonia legionella [Fatal]
  - Respiratory failure [Unknown]
  - Hypogammaglobulinaemia [Unknown]
  - Myasthenia gravis [Unknown]
  - Off label use [Unknown]
  - Drug effective for unapproved indication [Unknown]
